FAERS Safety Report 8454316-2 (Version None)
Quarter: 2012Q2

REPORT INFORMATION
  Report Type: 
  Country: None (occurrence: None)
  Receive Date: 20120620
  Receipt Date: 20120607
  Transmission Date: 20120825
  Serious: Yes (Other)
  Sender: FDA-Public Use
  Company Number: GB-AMGEN-GBRSP2012017396

PATIENT
  Age: 65 Year
  Sex: Male
  Weight: 89 kg

DRUGS (5)
  1. ENBREL [Suspect]
     Indication: ANKYLOSING SPONDYLITIS
     Dosage: UNK
  2. LANSOPRAZOLE [Concomitant]
     Indication: PROPHYLAXIS
     Dosage: 30 MG, 1X/DAY
  3. ENBREL [Suspect]
     Indication: RHEUMATOID ARTHRITIS
     Dosage: 50 MG, WEEKLY
     Route: 058
  4. SULFASALAZINE [Concomitant]
     Indication: ANKYLOSING SPONDYLITIS
     Dosage: 500 MG, 3X/DAY
     Route: 048
  5. ALLOPURINOL [Concomitant]
     Indication: GOUT
     Dosage: 300 MG, 1X/DAY

REACTIONS (7)
  - OTORRHOEA [None]
  - OTITIS MEDIA [None]
  - DEAFNESS BILATERAL [None]
  - NASOPHARYNGITIS [None]
  - TENDERNESS [None]
  - COUGH [None]
  - INFECTION [None]
